FAERS Safety Report 18123238 (Version 1)
Quarter: 2020Q3

REPORT INFORMATION
  Report Type: Spontaneous
  Country: IT (occurrence: IT)
  Receive Date: 20200807
  Receipt Date: 20200807
  Transmission Date: 20201103
  Serious: Yes (Hospitalization, Other)
  Sender: FDA-Public Use
  Company Number: IT-SA-2020SA203908

PATIENT

DRUGS (7)
  1. CITALOPRAM [Suspect]
     Active Substance: CITALOPRAM HYDROBROMIDE
     Dosage: 80 MG, TOTAL
     Route: 048
     Dates: start: 20200726, end: 20200726
  2. FLURAZEPAM [Suspect]
     Active Substance: FLURAZEPAM HYDROCHLORIDE
     Dosage: 120 MG, TOTAL
     Route: 048
     Dates: start: 20200726, end: 20200726
  3. HYDROCHLOROTHIAZIDE/IRBESARTAN [Suspect]
     Active Substance: HYDROCHLOROTHIAZIDE\IRBESARTAN
     Dosage: 4 DF, TOTAL
     Route: 048
     Dates: start: 20200726, end: 20200726
  4. DELORAZEPAM [Suspect]
     Active Substance: DELORAZEPAM
     Dosage: 8 MG, TOTAL
     Route: 048
     Dates: start: 20200726, end: 20200726
  5. LERCANIDIPINE HYDROCHLORIDE [Suspect]
     Active Substance: LERCANIDIPINE HYDROCHLORIDE
     Dosage: 80 MG, TOTAL
     Route: 048
     Dates: start: 20200726, end: 20200726
  6. NEBIVOLOL. [Suspect]
     Active Substance: NEBIVOLOL
     Dosage: 20 MG, TOTAL
     Route: 048
     Dates: start: 20200726, end: 20200726
  7. ARIPIPRAZOLE. [Suspect]
     Active Substance: ARIPIPRAZOLE
     Dosage: 80 MG, TOTAL
     Route: 048
     Dates: start: 20200726, end: 20200726

REACTIONS (4)
  - Hypotension [Recovering/Resolving]
  - Depressed level of consciousness [Recovering/Resolving]
  - Suicide attempt [Recovering/Resolving]
  - Intentional overdose [Unknown]

NARRATIVE: CASE EVENT DATE: 20200726
